FAERS Safety Report 23983450 (Version 1)
Quarter: 2024Q2

REPORT INFORMATION
  Report Type: Spontaneous
  Country: US (occurrence: US)
  Receive Date: 20240617
  Receipt Date: 20240617
  Transmission Date: 20240716
  Serious: Yes (Other)
  Sender: FDA-Public Use
  Company Number: US-SANDOZ-SDZ2023US016402

PATIENT
  Age: 43 Year
  Sex: Female

DRUGS (4)
  1. ENTRESTO [Suspect]
     Active Substance: SACUBITRIL\VALSARTAN
     Indication: Product used for unknown indication
     Dosage: 49 MG, BID
     Route: 065
  2. ENTRESTO [Suspect]
     Active Substance: SACUBITRIL\VALSARTAN
     Dosage: 49/51 MG 1 TABLET AM, 2 TABLETS PM
     Route: 065
  3. METOPROLOL TARTRATE [Suspect]
     Active Substance: METOPROLOL TARTRATE
     Indication: Product used for unknown indication
     Dosage: UNK
     Route: 065
  4. SPIRONOLACTONE [Suspect]
     Active Substance: SPIRONOLACTONE
     Indication: Product used for unknown indication
     Route: 065

REACTIONS (20)
  - Cardiomyopathy [Unknown]
  - Barrett^s oesophagus [Unknown]
  - Renal impairment [Unknown]
  - Blood bilirubin increased [Recovering/Resolving]
  - Implantable defibrillator insertion [Unknown]
  - Renal cyst [Unknown]
  - Stress [Unknown]
  - Blood glucose abnormal [Unknown]
  - Blood bilirubin abnormal [Unknown]
  - Sunburn [Unknown]
  - Gait disturbance [Unknown]
  - Inflammation [Unknown]
  - Pruritus [Unknown]
  - Skin exfoliation [Unknown]
  - Feeling abnormal [Unknown]
  - Renal pain [Recovering/Resolving]
  - Weight increased [Unknown]
  - Oedema [Unknown]
  - Rash [Recovered/Resolved]
  - Palpitations [Unknown]

NARRATIVE: CASE EVENT DATE: 20220201
